FAERS Safety Report 7986457-8 (Version None)
Quarter: 2011Q4

REPORT INFORMATION
  Report Type: 
  Country: None (occurrence: None)
  Receive Date: 20111216
  Receipt Date: 20110718
  Transmission Date: 20120403
  Serious: No
  Sender: FDA-Public Use
  Company Number: US-BRISTOL-MYERS SQUIBB COMPANY-15908643

PATIENT
  Age: 4 Decade
  Sex: Male

DRUGS (4)
  1. PRISTIQ [Suspect]
     Indication: DEPRESSION
  2. ANTIDIABETIC PRODUCT [Concomitant]
     Indication: DIABETES MELLITUS
  3. CHOLESTEROL MEDICATION [Concomitant]
     Indication: BLOOD CHOLESTEROL
  4. ABILIFY [Suspect]
     Indication: DEPRESSION

REACTIONS (1)
  - MYALGIA [None]
